FAERS Safety Report 6414051-9 (Version None)
Quarter: 2009Q4

REPORT INFORMATION
  Report Type: 
  Country: None (occurrence: None)
  Receive Date: 20091026
  Receipt Date: 20091013
  Transmission Date: 20100525
  Serious: Yes (Other)
  Sender: FDA-Public Use
  Company Number: US-JNJCH-2009027897

PATIENT
  Age: 35 Year
  Sex: Female

DRUGS (8)
  1. CETIRIZINE HYDROCHLORIDE [Suspect]
     Indication: PROPHYLAXIS
     Route: 065
  2. ACETAMINOPHEN [Suspect]
     Indication: PAIN
     Dosage: TEXT:UNKNOWN
     Route: 065
  3. IBUPROFEN [Suspect]
     Indication: PAIN
     Route: 065
  4. PREDNISONE TAB [Suspect]
     Indication: PROPHYLAXIS
     Route: 065
  5. PENICILLINE [Suspect]
     Indication: PROPHYLAXIS
     Dosage: TEXT:UNKNOWN
     Route: 065
  6. ANALGESICS [Suspect]
     Indication: ANAESTHESIA
     Dosage: TEXT:ONCE
     Route: 008
  7. GLYBURIDE [Concomitant]
     Indication: GESTATIONAL DIABETES
     Dosage: TEXT:UNKNOWN
     Route: 065
  8. ACYCLOVIR [Concomitant]
     Indication: GENITAL HERPES
     Dosage: TEXT:UNKNOWN
     Route: 065

REACTIONS (2)
  - ANAPHYLACTIC REACTION [None]
  - DRUG INEFFECTIVE FOR UNAPPROVED INDICATION [None]
